FAERS Safety Report 4693102-6 (Version None)
Quarter: 2005Q2

REPORT INFORMATION
  Report Type: 
  Country: None (occurrence: None)
  Receive Date: 20050617
  Receipt Date: 20050609
  Transmission Date: 20051028
  Serious: Yes (Hospitalization)
  Sender: FDA-Public Use
  Company Number: 200511992FR

PATIENT
  Age: 75 Year
  Sex: Male

DRUGS (5)
  1. LASILIX [Suspect]
     Route: 048
  2. TERALITHE [Suspect]
     Route: 048
     Dates: start: 19700101
  3. MOTILYO [Suspect]
     Indication: GASTROINTESTINAL MOTILITY DISORDER
     Route: 048
     Dates: start: 20040615
  4. RISPERDAL [Suspect]
     Route: 048
     Dates: start: 20010615
  5. OMEPRAZOLE [Concomitant]
     Route: 048

REACTIONS (3)
  - ABDOMINAL PAIN [None]
  - IMPAIRED GASTRIC EMPTYING [None]
  - INTESTINAL OBSTRUCTION [None]
